FAERS Safety Report 16523687 (Version 1)
Quarter: 2019Q3

REPORT INFORMATION
  Report Type: Spontaneous
  Country: JP (occurrence: JP)
  Receive Date: 20190702
  Receipt Date: 20190702
  Transmission Date: 20191004
  Serious: Yes (Other)
  Sender: FDA-Public Use
  Company Number: JP-JNJFOC-20190634670

PATIENT
  Age: 89 Year

DRUGS (1)
  1. TRAMADOL HYDROCHLORIDE TABLET [Suspect]
     Active Substance: TRAMADOL HYDROCHLORIDE
     Indication: PRODUCT USED FOR UNKNOWN INDICATION
     Dosage: UNK
     Route: 048
     Dates: start: 20190613, end: 20190615

REACTIONS (3)
  - Dizziness [Not Recovered/Not Resolved]
  - Nausea [Unknown]
  - Arrhythmia [Unknown]

NARRATIVE: CASE EVENT DATE: 201906
